FAERS Safety Report 10397153 (Version 1)
Quarter: 2014Q3

REPORT INFORMATION
  Report Type: Spontaneous
  Country: US (occurrence: None)
  Receive Date: 20140819
  Receipt Date: 20140819
  Transmission Date: 20150326
  Serious: Yes (Other)
  Sender: FDA-Public Use
  Company Number: None

PATIENT
  Age: 37 Year
  Sex: Female
  Weight: 54.43 kg

DRUGS (1)
  1. ESTROGEN [Suspect]
     Active Substance: ESTRONE\SUS SCROFA OVARY
     Indication: IN VITRO FERTILISATION
     Dosage: .1 MG 6 DAYS, .2 MG 4 DAYS?EVERY 4 DAYS?APPLIED TO A SURFACE USUALLY THE SKIN
     Route: 061
     Dates: start: 20140801, end: 20140811

REACTIONS (6)
  - Rash pruritic [None]
  - Rash erythematous [None]
  - Inflammation [None]
  - Swelling face [None]
  - Rash generalised [None]
  - Nasal congestion [None]

NARRATIVE: CASE EVENT DATE: 20140811
